FAERS Safety Report 9804310 (Version 2)
Quarter: 2014Q1

REPORT INFORMATION
  Report Type: Spontaneous
  Country: NL (occurrence: NL)
  Receive Date: 20140108
  Receipt Date: 20140108
  Transmission Date: 20141002
  Serious: Yes (Other)
  Sender: FDA-Public Use
  Company Number: NL-ALEXION PHARMACEUTICALS INC.-A201302988

PATIENT
  Sex: Female

DRUGS (2)
  1. SOLIRIS 300MG [Suspect]
     Indication: GLOMERULONEPHRITIS MEMBRANOPROLIFERATIVE
     Dosage: 900 MG, QW
     Route: 042
     Dates: start: 20130903
  2. SOLIRIS 300MG [Suspect]
     Indication: OFF LABEL USE

REACTIONS (2)
  - Renal impairment [Unknown]
  - Off label use [Unknown]
